FAERS Safety Report 13664902 (Version 5)
Quarter: 2017Q4

REPORT INFORMATION
  Report Type: Report from Study
  Country: FR (occurrence: FR)
  Receive Date: 20170619
  Receipt Date: 20171127
  Transmission Date: 20180320
  Serious: Yes (Hospitalization, Other)
  Sender: FDA-Public Use
  Company Number: PHHO2017FR009231

PATIENT
  Age: 72 Year
  Sex: Male
  Weight: 91 kg

DRUGS (12)
  1. BLINDED BYM338 [Suspect]
     Active Substance: BIMAGRUMAB
     Indication: HIP FRACTURE
     Dosage: CODE NOT BROKEN
     Route: 042
     Dates: start: 20170216, end: 20170413
  2. BLINDED NO TREATMENT RECEIVED [Suspect]
     Active Substance: INVESTIGATIONAL PRODUCT
     Indication: HIP FRACTURE
     Dosage: CODE NOT BROKEN
     Route: 042
     Dates: start: 20170216, end: 20170413
  3. BLINDED NO TREATMENT RECEIVED [Suspect]
     Active Substance: INVESTIGATIONAL PRODUCT
     Dosage: CODE NOT BROKEN
     Route: 042
     Dates: start: 20170608
  4. BLINDED PLACEBO [Suspect]
     Active Substance: INVESTIGATIONAL PRODUCT
     Dosage: CODE NOT BROKEN
     Route: 042
     Dates: start: 20170608
  5. COVERAM [Concomitant]
     Active Substance: AMLODIPINE\PERINDOPRIL
     Indication: HYPERTENSION
     Dosage: 1 DF, QD
     Route: 048
     Dates: start: 20110101
  6. BLINDED PLACEBO [Suspect]
     Active Substance: INVESTIGATIONAL PRODUCT
     Indication: HIP FRACTURE
     Dosage: CODE NOT BROKEN
     Route: 042
     Dates: start: 20170216, end: 20170413
  7. BISOPROLOL [Concomitant]
     Active Substance: BISOPROLOL
     Indication: SINUS TACHYCARDIA
     Dosage: 2.5 MG, QD
     Route: 065
     Dates: start: 20170511
  8. DEDROGYL [Concomitant]
     Active Substance: CALCIFEDIOL
     Indication: SUPPLEMENTATION THERAPY
     Dosage: 10 DRP, QD
     Route: 065
     Dates: start: 20170205
  9. ACLASTA [Suspect]
     Active Substance: ZOLEDRONIC ACID
     Indication: PRODUCT USED FOR UNKNOWN INDICATION
     Dosage: 5 MG, ANNUALLY
     Route: 041
     Dates: start: 20170424, end: 20170424
  10. BLINDED BYM338 [Suspect]
     Active Substance: BIMAGRUMAB
     Dosage: CODE NOT BROKEN
     Route: 042
     Dates: start: 20170608
  11. PARACETAMOL [Concomitant]
     Active Substance: ACETAMINOPHEN
     Indication: PAIN
     Dosage: PRN
     Route: 065
  12. ELIQUIS [Concomitant]
     Active Substance: APIXABAN
     Indication: SINUS TACHYCARDIA
     Dosage: 2 DF, QD
     Route: 065
     Dates: start: 20170511

REACTIONS (2)
  - Atrial fibrillation [Recovered/Resolved]
  - Atrial fibrillation [Recovered/Resolved]

NARRATIVE: CASE EVENT DATE: 20170511
